FAERS Safety Report 13537135 (Version 1)
Quarter: 2017Q2

REPORT INFORMATION
  Report Type: Spontaneous
  Country: US (occurrence: US)
  Receive Date: 20170511
  Receipt Date: 20170511
  Transmission Date: 20170830
  Serious: Yes (Other)
  Sender: FDA-Public Use
  Company Number: US-IPSEN BIOPHARMACEUTICALS, INC.-2017-03000

PATIENT
  Age: 72 Year
  Sex: Female

DRUGS (5)
  1. PREDNISONE. [Concomitant]
     Active Substance: PREDNISONE
  2. METHOTREXATE. [Concomitant]
     Active Substance: METHOTREXATE
  3. GABAPENTIN. [Concomitant]
     Active Substance: GABAPENTIN
  4. SULINDAC. [Concomitant]
     Active Substance: SULINDAC
  5. DYSPORT [Suspect]
     Active Substance: ABOBOTULINUMTOXINA
     Indication: SKIN WRINKLING
     Dosage: 60 UNITS
     Route: 030
     Dates: start: 20170304, end: 20170304

REACTIONS (5)
  - Product preparation error [Unknown]
  - Muscular weakness [Recovering/Resolving]
  - Neuromuscular toxicity [Unknown]
  - Cerebrovascular accident [Unknown]
  - Wrong technique in product usage process [Unknown]

NARRATIVE: CASE EVENT DATE: 201703
